FAERS Safety Report 23724999 (Version 1)
Quarter: 2024Q2

REPORT INFORMATION
  Report Type: Spontaneous
  Country: CN (occurrence: CN)
  Receive Date: 20240410
  Receipt Date: 20240410
  Transmission Date: 20240716
  Serious: Yes (Hospitalization)
  Sender: FDA-Public Use
  Company Number: CN-SHANGHAI JUNSHI BIOSCIENCES CO., LTD.-CN2024009700

PATIENT

DRUGS (1)
  1. TORIPALIMAB [Suspect]
     Active Substance: TORIPALIMAB
     Indication: Malignant melanoma
     Dosage: 240 MG, Q3W
     Route: 041

REACTIONS (4)
  - Rhabdomyolysis [Recovering/Resolving]
  - Gingival bleeding [Recovering/Resolving]
  - Rash [Recovering/Resolving]
  - Off label use [Unknown]
